FAERS Safety Report 4451611-9 (Version None)
Quarter: 2004Q3

REPORT INFORMATION
  Report Type: 
  Country: None (occurrence: None)
  Receive Date: 20040915
  Receipt Date: 20040901
  Transmission Date: 20050211
  Serious: Yes (Hospitalization, Other)
  Sender: FDA-Public Use
  Company Number: 2004052086

PATIENT
  Age: 72 Year
  Sex: Male

DRUGS (13)
  1. LIPITOR [Suspect]
     Indication: DYSLIPIDAEMIA
     Dosage: 40 MG (40 MG, 1 IN 1 D), ORAL
     Route: 048
     Dates: start: 20040720, end: 20040727
  2. DRUG, UNSPECIFIED (DRUG, UNSPECIFIED) [Concomitant]
  3. SALMETEROL XINAFOATE (SALMETEROL XINAFOATE) [Concomitant]
  4. SALUTAMOL W/IPRATROPIUM (IPRATROPIUM) [Concomitant]
  5. PANTOPRAZOLE SODIUM [Concomitant]
  6. DILTIAZEM HYDROCHLORIDE [Concomitant]
  7. VENLAFAXINE HCL [Concomitant]
  8. ISOSORBIDE MONONITRATE (MONONITRATE) [Concomitant]
  9. PREDNISOLONE (PREDNSIOLONE) [Concomitant]
  10. CLOPIDOGREL BISULFATE [Concomitant]
  11. PIPERACILLIN/TAZOBACTAM (PIPERACILLIN, TAZOBACTAM) [Concomitant]
  12. CALCIUM WITH VITAMIN D (CALCIUM PHOSPHATE, CALCIUM SODIUM LACTATE, ERG [Concomitant]
  13. THEOPHYLLINE (THEOPHYLLIN) [Concomitant]

REACTIONS (4)
  - CONDITION AGGRAVATED [None]
  - ELECTROCARDIOGRAM ABNORMAL [None]
  - MYOSITIS [None]
  - RESPIRATORY DISORDER [None]
